FAERS Safety Report 7862916 (Version 2)
Quarter: 2013Q2

REPORT INFORMATION
  Report Type: Spontaneous
  Country: US (occurrence: US)
  Receive Date: 20110318
  Receipt Date: 20130410
  Transmission Date: 20140414
  Serious: Yes (Hospitalization, Other)
  Sender: FDA-Public Use
  Company Number: US-JNJFOC-20110304028

PATIENT
  Age: 67 Year
  Sex: Female
  Weight: 63.5 kg

DRUGS (6)
  1. REMICADE [Suspect]
     Indication: RHEUMATOID ARTHRITIS
     Dosage: DOSE: 6 VIALS
     Route: 042
     Dates: start: 2004, end: 200912
  2. CALAN SR [Concomitant]
     Indication: CARDIAC DISORDER
     Route: 048
     Dates: start: 2003
  3. TOPROL-XL [Concomitant]
     Indication: CARDIAC DISORDER
     Route: 048
     Dates: start: 2003
  4. ALDACTONE [Concomitant]
     Indication: CARDIAC DISORDER
     Route: 048
     Dates: start: 2003
  5. PREDNISONE [Concomitant]
     Indication: ARTHRITIS
     Route: 048
  6. ASPIRIN [Concomitant]
     Indication: CARDIAC DISORDER
     Route: 048
     Dates: start: 2003

REACTIONS (2)
  - Renal cancer [Recovered/Resolved]
  - Spleen disorder [Not Recovered/Not Resolved]
